FAERS Safety Report 20059751 (Version 1)
Quarter: 2021Q4

REPORT INFORMATION
  Report Type: Spontaneous
  Country: FR (occurrence: FR)
  Receive Date: 20211111
  Receipt Date: 20211111
  Transmission Date: 20220303
  Serious: Yes (Hospitalization)
  Sender: FDA-Public Use
  Company Number: None

PATIENT
  Age: 58 Year
  Sex: Male
  Weight: 84 kg

DRUGS (6)
  1. ETOPOSIDE [Suspect]
     Active Substance: ETOPOSIDE
     Indication: Acute myeloid leukaemia
     Dosage: 150 MILLIGRAM/SQ. METER
     Route: 051
     Dates: start: 20100826, end: 20100830
  2. CYTARABINE [Suspect]
     Active Substance: CYTARABINE
     Indication: Acute myeloid leukaemia
     Dosage: 100 MILLIGRAM/SQ. METER, CYCLE
     Route: 051
     Dates: start: 20100311, end: 20100709
  3. MITOXANTRONE [Suspect]
     Active Substance: MITOXANTRONE HYDROCHLORIDE
     Indication: Acute myeloid leukaemia
     Dosage: 12 MILLIGRAM/SQ. METER, CYCLE
     Route: 051
     Dates: start: 20100517, end: 20100706
  4. AMSACRINE [Suspect]
     Active Substance: AMSACRINE
     Indication: Acute myeloid leukaemia
     Dosage: 150 MILLIGRAM/SQ. METER
     Route: 051
     Dates: start: 20100826, end: 20100830
  5. MYLOTARG [Suspect]
     Active Substance: GEMTUZUMAB OZOGAMICIN
     Indication: Acute myeloid leukaemia
     Dosage: 6 MILLIGRAM/SQ. METER, CYCLE
     Route: 051
     Dates: start: 20100315, end: 20100521
  6. DAUNORUBICIN [Suspect]
     Active Substance: DAUNORUBICIN
     Indication: Acute myeloid leukaemia
     Dosage: 60 MILLIGRAM/SQ. METER, CYCLE
     Route: 051
     Dates: start: 20100311, end: 20100416

REACTIONS (2)
  - Acute myeloid leukaemia [Not Recovered/Not Resolved]
  - Leukaemia recurrent [Not Recovered/Not Resolved]

NARRATIVE: CASE EVENT DATE: 20210701
